FAERS Safety Report 8218545 (Version 2)
Quarter: 2013Q4

REPORT INFORMATION
  Report Type: Report from Study
  Country: JP (occurrence: JP)
  Receive Date: 20111101
  Receipt Date: 20131118
  Transmission Date: 20140711
  Serious: Yes (Hospitalization, Disabling, Other)
  Sender: FDA-Public Use
  Company Number: PHHY2009JP31943

PATIENT
  Age: 71 Year
  Sex: Male

DRUGS (7)
  1. AMN107 [Suspect]
     Indication: CHRONIC MYELOID LEUKAEMIA
     Dosage: 800 MG BID
     Route: 048
     Dates: start: 20090611, end: 20090701
  2. AMN107 [Suspect]
     Dosage: 800 MG, BID
     Route: 048
     Dates: start: 20090710, end: 20090724
  3. PREDONINE [Concomitant]
     Indication: INTERSTITIAL LUNG DISEASE
     Dosage: 60 MG, UNK
     Route: 048
     Dates: start: 20090602, end: 20090616
  4. PREDONINE [Concomitant]
     Dosage: 50MG, 40MG, 30MG, 25MG
     Route: 048
     Dates: start: 20090617, end: 20090724
  5. BAKTAR [Concomitant]
     Indication: PROPHYLAXIS
     Dosage: 1 DF, UNK
     Route: 048
     Dates: start: 20090526
  6. SELBEX [Concomitant]
     Dosage: 150 MG, UNK
     Route: 048
     Dates: start: 20090508
  7. OMEPRAL [Concomitant]
     Dosage: 20 MG, UNK
     Dates: start: 20090609

REACTIONS (8)
  - Interstitial lung disease [Recovered/Resolved with Sequelae]
  - Haemoptysis [Recovered/Resolved]
  - Condition aggravated [Recovered/Resolved with Sequelae]
  - Blood bilirubin increased [Unknown]
  - Haemoglobin decreased [Recovered/Resolved]
  - Platelet count decreased [Not Recovered/Not Resolved]
  - Malignant neoplasm progression [Not Recovered/Not Resolved]
  - Ventricular extrasystoles [Not Recovered/Not Resolved]
